FAERS Safety Report 5495754-X (Version None)
Quarter: 2007Q4

REPORT INFORMATION
  Report Type: 
  Country: None (occurrence: None)
  Receive Date: 20071025
  Receipt Date: 20070102
  Transmission Date: 20080405
  Serious: No
  Sender: FDA-Public Use
  Company Number: A0623707A

PATIENT
  Age: 63 Year
  Sex: Male

DRUGS (4)
  1. ADVAIR DISKUS 100/50 [Suspect]
     Indication: ASTHMA
     Dosage: 1PUFF TWICE PER DAY
     Route: 055
     Dates: start: 20040601
  2. RHINOCORT [Concomitant]
     Indication: NASAL CONGESTION
     Route: 045
     Dates: start: 20050201
  3. GABAPENTIN [Concomitant]
     Dosage: 1CAP PER DAY
     Route: 048
     Dates: start: 20050201
  4. ALBUTEROL [Concomitant]
     Indication: ASTHMA
     Dosage: 2PUFF PER DAY
     Route: 055
     Dates: start: 20050201

REACTIONS (2)
  - DRUG INEFFECTIVE [None]
  - PHARMACEUTICAL PRODUCT COMPLAINT [None]
